FAERS Safety Report 6902411-9 (Version None)
Quarter: 2010Q3

REPORT INFORMATION
  Report Type: 
  Country: None (occurrence: None)
  Receive Date: 20100803
  Receipt Date: 20080520
  Transmission Date: 20110219
  Serious: No
  Sender: FDA-Public Use
  Company Number: US-PFIZER INC-2008041037

PATIENT
  Sex: Female
  Weight: 61.7 kg

DRUGS (3)
  1. LYRICA [Suspect]
     Indication: HERPES ZOSTER
     Dates: start: 20080501, end: 20080501
  2. LEVSIN [Concomitant]
  3. DRUG, UNSPECIFIED [Concomitant]

REACTIONS (3)
  - DRUG INEFFECTIVE [None]
  - INSOMNIA [None]
  - PAIN [None]
